FAERS Safety Report 24683352 (Version 3)
Quarter: 2025Q1

REPORT INFORMATION
  Report Type: Report from Study
  Country: US (occurrence: US)
  Receive Date: 20241201
  Receipt Date: 20250214
  Transmission Date: 20250409
  Serious: Yes (Hospitalization, Other)
  Sender: ABBVIE
  Company Number: US-ABBVIE-6023083

PATIENT
  Age: 63 Year
  Sex: Male

DRUGS (8)
  1. LUPRON DEPOT [Suspect]
     Active Substance: LEUPROLIDE ACETATE
     Indication: Prostate cancer
     Route: 030
     Dates: start: 202409
  2. LUPRON DEPOT [Suspect]
     Active Substance: LEUPROLIDE ACETATE
     Route: 030
     Dates: start: 201903
  3. ELIQUIS [Concomitant]
     Active Substance: APIXABAN
     Indication: Product used for unknown indication
  4. METFORMIN [Concomitant]
     Active Substance: METFORMIN HYDROCHLORIDE
     Indication: Diabetes mellitus
  5. ATORVASTATIN [Concomitant]
     Active Substance: ATORVASTATIN
     Indication: Blood cholesterol abnormal
  6. EZETIMIBE [Concomitant]
     Active Substance: EZETIMIBE
     Indication: Blood cholesterol
  7. METAMUCIL [Concomitant]
     Active Substance: PLANTAGO SEED
     Indication: Product used for unknown indication
  8. BENICAR [Concomitant]
     Active Substance: OLMESARTAN MEDOXOMIL
     Indication: Blood pressure measurement

REACTIONS (10)
  - Bladder operation [Unknown]
  - Diarrhoea [Not Recovered/Not Resolved]
  - Prostate cancer recurrent [Unknown]
  - Post procedural complication [Recovering/Resolving]
  - Atrial fibrillation [Unknown]
  - Neoplasm malignant [Not Recovered/Not Resolved]
  - Incision site discharge [Recovering/Resolving]
  - Bladder neoplasm [Recovering/Resolving]
  - Prostatic specific antigen increased [Unknown]
  - Procedural pain [Recovering/Resolving]

NARRATIVE: CASE EVENT DATE: 20240801
